FAERS Safety Report 4883508-4 (Version None)
Quarter: 2006Q1

REPORT INFORMATION
  Report Type: 
  Country: None (occurrence: None)
  Receive Date: 20060118
  Receipt Date: 20051005
  Transmission Date: 20060701
  Serious: Yes (Death, Hospitalization, Other)
  Sender: FDA-Public Use
  Company Number: US-MERCK-0510USA04239

PATIENT
  Age: 78 Year
  Sex: Female
  Weight: 82 kg

DRUGS (1)
  1. VIOXX [Suspect]
     Indication: ARTHRITIS
     Route: 048

REACTIONS (9)
  - ARTERIAL OCCLUSIVE DISEASE [None]
  - CARDIAC DISORDER [None]
  - CORONARY ARTERY DISEASE [None]
  - DEHYDRATION [None]
  - NUTRITIONAL CONDITION ABNORMAL [None]
  - PELVIC MASS [None]
  - PNEUMONIA ASPERGILLUS [None]
  - RENAL FAILURE ACUTE [None]
  - SHOCK HYPOGLYCAEMIC [None]
